FAERS Safety Report 4738310-0 (Version None)
Quarter: 2005Q3

REPORT INFORMATION
  Report Type: 
  Country: None (occurrence: None)
  Receive Date: 20050809
  Receipt Date: 20050805
  Transmission Date: 20060218
  Serious: Yes (Death, Hospitalization)
  Sender: FDA-Public Use
  Company Number: PHRM2005FR02228

PATIENT
  Age: 82 Year
  Sex: Male

DRUGS (4)
  1. VOLTAREN [Suspect]
     Dosage: UNK, UNK
     Route: 048
  2. PREVISCAN [Suspect]
     Dosage: UNK, UNK
     Route: 048
  3. REMINYL [Concomitant]
     Route: 048
  4. VERAPAMIL [Concomitant]
     Route: 048

REACTIONS (5)
  - CEREBRAL HAEMORRHAGE [None]
  - DRUG INTERACTION [None]
  - GLASGOW COMA SCALE ABNORMAL [None]
  - INTERNATIONAL NORMALISED RATIO INCREASED [None]
  - LOSS OF CONSCIOUSNESS [None]
